FAERS Safety Report 5699452-9 (Version None)
Quarter: 2008Q2

REPORT INFORMATION
  Report Type: 
  Country: None (occurrence: None)
  Receive Date: 20080407
  Receipt Date: 20080407
  Transmission Date: 20081010
  Serious: No
  Sender: FDA-Public Use
  Company Number: None

PATIENT
  Sex: Female
  Weight: 72.5755 kg

DRUGS (2)
  1. KLONOPIN [Suspect]
     Indication: ANXIETY DISORDER
     Dosage: 0.5MG 1/2 BID PO APPROX. ONCE WK
     Route: 048
  2. PREVACID [Concomitant]

REACTIONS (3)
  - DEPRESSION [None]
  - DRUG INTOLERANCE [None]
  - OEDEMA [None]
